FAERS Safety Report 6191389-4 (Version None)
Quarter: 2009Q2

REPORT INFORMATION
  Report Type: 
  Country: None (occurrence: None)
  Receive Date: 20090515
  Receipt Date: 20090511
  Transmission Date: 20091009
  Serious: Yes (Hospitalization, Other)
  Sender: FDA-Public Use
  Company Number: US-ASTRAZENECA-2009UW11951

PATIENT
  Sex: Male

DRUGS (2)
  1. PULMICORT RESPULES [Suspect]
     Indication: PROPHYLAXIS
     Route: 055
  2. PULMICORT RESPULES [Suspect]
     Route: 055

REACTIONS (2)
  - DYSPNOEA [None]
  - NASOPHARYNGITIS [None]
